FAERS Safety Report 17641623 (Version 1)
Quarter: 2020Q2

REPORT INFORMATION
  Report Type: Spontaneous
  Country: EG (occurrence: EG)
  Receive Date: 20200408
  Receipt Date: 20200408
  Transmission Date: 20200713
  Serious: Yes (Hospitalization, Other)
  Sender: FDA-Public Use
  Company Number: EG-ADVANZ PHARMA-202003002270

PATIENT

DRUGS (3)
  1. INSULIN [Concomitant]
     Active Substance: INSULIN NOS
     Indication: GLAUCOMA
     Dosage: 30 IU, QD
  2. MENTHOL. [Concomitant]
     Active Substance: MENTHOL
  3. HYDROXYCHLOROQUINE SULFATE (AUTHORIZED GENERIC),PLAQUENIL [Suspect]
     Active Substance: HYDROXYCHLOROQUINE SULFATE
     Indication: ANTIVIRAL PROPHYLAXIS
     Dosage: 2 DOSAGE FORM, QD
     Route: 065

REACTIONS (5)
  - Blood glucose abnormal [Recovered/Resolved]
  - Brain oedema [Unknown]
  - Blindness [Unknown]
  - Loss of consciousness [Recovered/Resolved]
  - Atrial fibrillation [Unknown]
